FAERS Safety Report 13105723 (Version 4)
Quarter: 2020Q3

REPORT INFORMATION
  Report Type: Report from Study
  Country: BR (occurrence: BR)
  Receive Date: 20170111
  Receipt Date: 20180109
  Transmission Date: 20201104
  Serious: Yes (Death, Life-Threatening)
  Sender: FDA-Public Use
  Company Number: BR-JNJFOC-20170104684

PATIENT
  Age: 81 Year
  Sex: Female
  Weight: 38.1 kg

DRUGS (2)
  1. DARATUMUMAB [Suspect]
     Active Substance: DARATUMUMAB
     Route: 065
  2. DARATUMUMAB [Suspect]
     Active Substance: DARATUMUMAB
     Indication: PLASMA CELL MYELOMA
     Route: 065
     Dates: start: 20161219, end: 20161229

REACTIONS (5)
  - Deep vein thrombosis [Not Recovered/Not Resolved]
  - Sepsis [Fatal]
  - Shock [Fatal]
  - Hypotension [Not Recovered/Not Resolved]
  - Febrile neutropenia [Fatal]

NARRATIVE: CASE EVENT DATE: 20170104
